FAERS Safety Report 8813320 (Version 1)
Quarter: 2012Q4

REPORT INFORMATION
  Report Type: 
  Country: US (occurrence: US)
  Receive Date: 20120927
  Receipt Date: 20120927
  Transmission Date: 20130627
  Serious: No
  Sender: FDA-Public Use
  Company Number: US-AMGEN-USASP2012053575

PATIENT
  Sex: Male

DRUGS (1)
  1. PROLIA [Suspect]
     Indication: BONE LOSS
     Dosage: UNK

REACTIONS (3)
  - Blood cholesterol increased [Unknown]
  - Blood triglycerides increased [Unknown]
  - Blood test abnormal [Unknown]
